FAERS Safety Report 7762456-6 (Version None)
Quarter: 2011Q3

REPORT INFORMATION
  Report Type: 
  Country: None (occurrence: None)
  Receive Date: 20110920
  Receipt Date: 20110622
  Transmission Date: 20111222
  Serious: No
  Sender: FDA-Public Use
  Company Number: US-MYLANLABS-2011S1013207

PATIENT
  Age: 30 Year
  Sex: Female
  Weight: 58.97 kg

DRUGS (1)
  1. RISPERIDONE [Suspect]
     Indication: SCHIZOPHRENIA
     Dates: start: 20110527

REACTIONS (2)
  - HALLUCINATION [None]
  - DRUG INEFFECTIVE [None]
